FAERS Safety Report 9056503 (Version 3)
Quarter: 2017Q1

REPORT INFORMATION
  Report Type: Report from Study
  Country: MD (occurrence: MD)
  Receive Date: 20130204
  Receipt Date: 20170308
  Transmission Date: 20170429
  Serious: Yes (Death, Life-Threatening, Hospitalization)
  Sender: FDA-Public Use
  Company Number: MD-PFIZER INC-2012331216

PATIENT
  Age: 24 Year
  Sex: Female
  Weight: 53 kg

DRUGS (5)
  1. PF-04236921 [Suspect]
     Active Substance: INVESTIGATIONAL PRODUCT
     Indication: SYSTEMIC LUPUS ERYTHEMATOSUS
     Dosage: 200 MG, EVERY EIGHT WEEKS
     Route: 058
     Dates: start: 20121002
  2. PF-04236921 [Suspect]
     Active Substance: INVESTIGATIONAL PRODUCT
     Dosage: SECOND DOSE
     Route: 058
     Dates: start: 20121127
  3. METHYLPREDNISOLONE. [Suspect]
     Active Substance: METHYLPREDNISOLONE
     Dosage: 8 MG, DAILY
     Route: 048
     Dates: start: 20120821, end: 20121226
  4. METHYLPREDNISOLONE SODIUM SUCCINATE. [Suspect]
     Active Substance: METHYLPREDNISOLONE SODIUM SUCCINATE
     Dosage: 500 MG, PULSE
     Route: 042
     Dates: start: 201208
  5. METHYLPREDNISOLONE SODIUM SUCCINATE. [Suspect]
     Active Substance: METHYLPREDNISOLONE SODIUM SUCCINATE
     Dosage: 1.5 MG/KG, 500 MG, PULSE
     Route: 042
     Dates: start: 201101, end: 201101

REACTIONS (3)
  - Disseminated tuberculosis [Fatal]
  - Pulmonary embolism [Fatal]
  - Pericarditis [Fatal]

NARRATIVE: CASE EVENT DATE: 20121226
